FAERS Safety Report 7959533-3 (Version None)
Quarter: 2011Q4

REPORT INFORMATION
  Report Type: 
  Country: None (occurrence: None)
  Receive Date: 20111206
  Receipt Date: 20111201
  Transmission Date: 20120403
  Serious: Yes (Other)
  Sender: FDA-Public Use
  Company Number: JP-ROCHE-803921

PATIENT
  Age: 62 Year
  Sex: Male

DRUGS (5)
  1. MYCOPHENOLATE MOFETIL (CELLCEPT) [Suspect]
     Indication: PROPHYLAXIS AGAINST TRANSPLANT REJECTION
     Route: 048
  2. TACROLIMUS [Suspect]
     Indication: PRODUCT USED FOR UNKNOWN INDICATION
  3. CYCLOSPORINE [Concomitant]
  4. MIZORIBINE [Concomitant]
     Route: 048
  5. METHYLPREDNISOLONE [Concomitant]

REACTIONS (2)
  - RENAL IMPAIRMENT [None]
  - PRIMARY EFFUSION LYMPHOMA [None]
